FAERS Safety Report 14256040 (Version 3)
Quarter: 2022Q2

REPORT INFORMATION
  Report Type: Spontaneous
  Country: CA (occurrence: None)
  Receive Date: 20171206
  Receipt Date: 20220505
  Transmission Date: 20220721
  Serious: Yes (Other)
  Sender: FDA-Public Use
  Company Number: 2017SF22857

PATIENT
  Age: 40 Year
  Sex: Female

DRUGS (6)
  1. SEROQUEL [Suspect]
     Active Substance: QUETIAPINE FUMARATE
     Dosage: 50-100MG AT BED TIME
     Route: 048
  2. SEROQUEL [Suspect]
     Active Substance: QUETIAPINE FUMARATE
     Dosage: 12.5-25 MG ONCE A DAY
     Route: 048
  3. HYDROMORPHONE HYDROCHLORIDE [Suspect]
     Active Substance: HYDROMORPHONE HYDROCHLORIDE
     Dosage: 9 MG, TWICE DAILY
     Route: 065
     Dates: start: 201704
  4. SYNTHROID [Suspect]
     Active Substance: LEVOTHYROXINE SODIUM
     Dosage: 137 UG ONCE DAILY
     Route: 065
     Dates: start: 2005
  5. CYMBALTA [Suspect]
     Active Substance: DULOXETINE HYDROCHLORIDE
     Dosage: 60 MG ONCE DAILY
     Route: 065
     Dates: start: 201703
  6. VENTOLIN [Concomitant]
     Active Substance: ALBUTEROL SULFATE
     Dosage: PUFFER ONCE DAILY AS NEEDED AS REQUIRED

REACTIONS (3)
  - Influenza like illness [Unknown]
  - Productive cough [Unknown]
  - Pneumonia [Recovered/Resolved]
